FAERS Safety Report 8386642-X (Version None)
Quarter: 2012Q2

REPORT INFORMATION
  Report Type: 
  Country: None (occurrence: None)
  Receive Date: 20120525
  Receipt Date: 20120525
  Transmission Date: 20120825
  Serious: Yes (Hospitalization)
  Sender: FDA-Public Use
  Company Number: FR-PFIZER INC-2012115296

PATIENT
  Age: 29 Year
  Sex: Male

DRUGS (2)
  1. IBUPROFEN + PSEUDOEPHEDRINE HCL [Suspect]
     Indication: ORAL INFECTION
  2. IBUPROFEN + PSEUDOEPHEDRINE HCL [Suspect]
     Indication: RESPIRATORY TRACT INFECTION
     Dosage: UNK
     Route: 048
     Dates: start: 20120101, end: 20120101

REACTIONS (3)
  - PHONOPHOBIA [None]
  - VOMITING [None]
  - HEADACHE [None]
